FAERS Safety Report 6416945-7 (Version None)
Quarter: 2009Q4

REPORT INFORMATION
  Report Type: 
  Country: None (occurrence: None)
  Receive Date: 20091027
  Receipt Date: 20081202
  Transmission Date: 20100525
  Serious: No
  Sender: FDA-Public Use
  Company Number: US-ALLERGAN-0815369US

PATIENT

DRUGS (1)
  1. ALPHAGAN [Suspect]
     Indication: DRUG USE FOR UNKNOWN INDICATION

REACTIONS (4)
  - EYE PRURITUS [None]
  - HYPERSENSITIVITY [None]
  - LACRIMATION INCREASED [None]
  - OCULAR HYPERAEMIA [None]
